FAERS Safety Report 8319556-1 (Version None)
Quarter: 2012Q2

REPORT INFORMATION
  Report Type: 
  Country: None (occurrence: None)
  Receive Date: 20120427
  Receipt Date: 20120423
  Transmission Date: 20120825
  Serious: Yes (Other)
  Sender: FDA-Public Use
  Company Number: PHHY2012CA000980

PATIENT
  Sex: Female

DRUGS (5)
  1. GILENYA [Suspect]
     Indication: RELAPSING-REMITTING MULTIPLE SCLEROSIS
     Dosage: 0.5 MG, QD
     Route: 048
     Dates: start: 20111214, end: 20120417
  2. PAXIL [Concomitant]
     Dosage: 60 MG, DAILY
     Route: 048
  3. VITAMIN D [Concomitant]
     Dosage: 10000 UNITS ONCE A WEEK
     Route: 048
  4. CONCERTA [Concomitant]
     Dosage: 54 MG, DAILY
     Route: 048
  5. CLONAZEPAM [Concomitant]
     Dosage: 1 MG, UNK
     Route: 048

REACTIONS (16)
  - CONFUSIONAL STATE [None]
  - INSOMNIA [None]
  - BLADDER DISORDER [None]
  - FUNGAL INFECTION [None]
  - TENDERNESS [None]
  - OESOPHAGEAL DISORDER [None]
  - BACK PAIN [None]
  - EXERCISE TOLERANCE DECREASED [None]
  - FEELING COLD [None]
  - ABDOMINAL DISCOMFORT [None]
  - PAIN [None]
  - FATIGUE [None]
  - HEART RATE DECREASED [None]
  - GASTROOESOPHAGEAL REFLUX DISEASE [None]
  - FALL [None]
  - TEMPERATURE INTOLERANCE [None]
